FAERS Safety Report 7359984-4 (Version None)
Quarter: 2011Q1

REPORT INFORMATION
  Report Type: 
  Country: None (occurrence: None)
  Receive Date: 20110317
  Receipt Date: 20110311
  Transmission Date: 20110831
  Serious: Yes (Hospitalization)
  Sender: FDA-Public Use
  Company Number: JP-MERCK-1103USA01965

PATIENT
  Age: 89 Year
  Sex: Female

DRUGS (5)
  1. HERBESSER R [Concomitant]
     Route: 048
  2. PARIET [Concomitant]
     Route: 048
  3. JUVELA N [Concomitant]
     Route: 048
  4. FOSAMAX [Suspect]
     Indication: OSTEOPOROSIS
     Route: 048
     Dates: start: 20060901
  5. DEPAS [Concomitant]
     Route: 048

REACTIONS (1)
  - FEMUR FRACTURE [None]
